FAERS Safety Report 18272089 (Version 5)
Quarter: 2021Q4

REPORT INFORMATION
  Report Type: Report from Study
  Country: FR (occurrence: None)
  Receive Date: 20200916
  Receipt Date: 20211112
  Transmission Date: 20220303
  Serious: Yes (Hospitalization)
  Sender: FDA-Public Use
  Company Number: FR-ROCHE-2674945

PATIENT
  Age: 77 Year
  Sex: Female
  Weight: 55 kg

DRUGS (3)
  1. BEVACIZUMAB [Suspect]
     Active Substance: BEVACIZUMAB
     Indication: Cervix carcinoma recurrent
     Dosage: DATE OF MOST RECENT DOSE OF BEVACIZUMAB (930 MG) PRIOR TO ONSET OF AE/SAE (SECOND EPISODE OF HEMATUR
     Route: 042
     Dates: start: 20200519
  2. CARBOPLATIN [Suspect]
     Active Substance: CARBOPLATIN
     Indication: Cervix carcinoma recurrent
     Dosage: DATE OF MOST RECENT DOSE OF CARBOPLATIN (380 MG) PRIOR TO ONSET OF AE/SAE (SECOND EPISODE OF HEMATUR
     Route: 042
     Dates: start: 20200519
  3. PACLITAXEL [Suspect]
     Active Substance: PACLITAXEL
     Indication: Cervix carcinoma recurrent
     Dosage: DATE OF MOST RECENT DOSE OF PACLITAXEL(280 MG) PRIOR TO ONSET OF AE/SAE (SECOND EPISODE OF HEMATURIA
     Route: 042
     Dates: start: 20200519

REACTIONS (2)
  - Urinary retention [Recovered/Resolved]
  - Haematuria [Recovered/Resolved]

NARRATIVE: CASE EVENT DATE: 20200811
